FAERS Safety Report 13378937 (Version 1)
Quarter: 2017Q1

REPORT INFORMATION
  Report Type: Spontaneous
  Country: US (occurrence: US)
  Receive Date: 20170328
  Receipt Date: 20170328
  Transmission Date: 20170429
  Serious: No
  Sender: FDA-Public Use
  Company Number: None

PATIENT

DRUGS (10)
  1. EPIRUBICIN [Suspect]
     Active Substance: EPIRUBICIN
  2. RHEOMACRODEX [Suspect]
     Active Substance: DEXTRAN 40
  3. ROMIPLOSTIM [Suspect]
     Active Substance: ROMIPLOSTIM
  4. PITRESSIN [Suspect]
     Active Substance: VASOPRESSIN
  5. REOPRO [Suspect]
     Active Substance: ABCIXIMAB
  6. THIORIDAZINE [Suspect]
     Active Substance: THIORIDAZINE
  7. ROMIDEPSIN [Suspect]
     Active Substance: ROMIDEPSIN
  8. PITOCIN [Suspect]
     Active Substance: OXYTOCIN
  9. THORAZINE [Suspect]
     Active Substance: CHLORPROMAZINE
  10. ERIBULIN [Suspect]
     Active Substance: ERIBULIN

REACTIONS (1)
  - Product name confusion [None]
